FAERS Safety Report 9408881 (Version 1)
Quarter: 2013Q3

REPORT INFORMATION
  Report Type: Spontaneous
  Country: US (occurrence: US)
  Receive Date: 20130719
  Receipt Date: 20130719
  Transmission Date: 20140515
  Serious: Yes (Hospitalization, Other)
  Sender: FDA-Public Use
  Company Number: US-MERCK-1307USA007855

PATIENT
  Age: 66 Year
  Sex: Female

DRUGS (7)
  1. JANUMET [Suspect]
  2. TUMS E-X [Interacting]
     Indication: ABDOMINAL DISCOMFORT
     Dosage: UNK
     Dates: start: 20130610
  3. SYNTHROID [Interacting]
  4. BYSTOLIC [Interacting]
  5. ASPIRIN [Interacting]
  6. VITAMINS (UNSPECIFIED) [Interacting]
  7. NEBIVOLOL HYDROCHLORIDE [Interacting]

REACTIONS (7)
  - Convulsion [Recovered/Resolved]
  - Immobile [Recovered/Resolved]
  - Speech disorder [Recovered/Resolved]
  - Headache [Not Recovered/Not Resolved]
  - Electroencephalogram abnormal [Unknown]
  - Cerebral cyst [Unknown]
  - Drug interaction [Recovered/Resolved]
